FAERS Safety Report 8791176 (Version 1)
Quarter: 2012Q4

REPORT INFORMATION
  Report Type: Spontaneous
  Country: US (occurrence: None)
  Receive Date: 20120914
  Receipt Date: 20120914
  Transmission Date: 20130627
  Serious: Yes (Hospitalization)
  Sender: FDA-Public Use
  Company Number: None

PATIENT
  Age: 60 Year
  Sex: Male
  Weight: 81.2 kg

DRUGS (14)
  1. BACTRIM DS [Suspect]
     Indication: CELLULITIS
     Dosage: 2 TABS BID PO RECENT
     Route: 048
  2. METHOTREXATE [Suspect]
     Indication: POLYMYOSITIS
     Dosage: 25MG Q SATURDAY PO CHRONIC
     Route: 048
  3. MVI [Concomitant]
  4. FISH OIL [Concomitant]
  5. VIT C [Concomitant]
  6. PROZAC [Concomitant]
  7. LAMICTAL [Concomitant]
  8. PROPECIA [Concomitant]
  9. ADVAIR [Concomitant]
  10. WELLBUTRIN [Concomitant]
  11. MINOCYCLINE [Concomitant]
  12. FOLIC ACID [Concomitant]
  13. CELLCEPT [Concomitant]
  14. APAP/OXYCODON [Concomitant]

REACTIONS (4)
  - Pneumonitis [None]
  - Pneumonitis chemical [None]
  - Acute respiratory failure [None]
  - Interstitial lung disease [None]
